FAERS Safety Report 4638746-2 (Version None)
Quarter: 2005Q2

REPORT INFORMATION
  Report Type: 
  Country: None (occurrence: None)
  Receive Date: 20050328
  Receipt Date: 20041208
  Transmission Date: 20051028
  Serious: No
  Sender: FDA-Public Use
  Company Number: US_0412108985

PATIENT
  Age: 20 Year
  Sex: Male
  Weight: 136 kg

DRUGS (1)
  1. STRATTERA [Suspect]
     Dosage: 180 MG DAY

REACTIONS (2)
  - DRUG INEFFECTIVE [None]
  - PRESCRIBED OVERDOSE [None]
